FAERS Safety Report 13431388 (Version 1)
Quarter: 2017Q2

REPORT INFORMATION
  Report Type: Spontaneous
  Country: CH (occurrence: CH)
  Receive Date: 20170412
  Receipt Date: 20170412
  Transmission Date: 20170830
  Serious: Yes (Hospitalization)
  Sender: FDA-Public Use
  Company Number: CH-ASTRAZENECA-2017SE35255

PATIENT
  Age: 31481 Day
  Sex: Male

DRUGS (1)
  1. SEQUASE XR [Suspect]
     Active Substance: QUETIAPINE FUMARATE
     Dosage: 150.0MG ONCE/SINGLE ADMINISTRATION
     Route: 048
     Dates: start: 20170318, end: 20170318

REACTIONS (2)
  - Bradycardia [Unknown]
  - Accidental exposure to product [Unknown]

NARRATIVE: CASE EVENT DATE: 20170318
